FAERS Safety Report 9209003 (Version 2)
Quarter: 2013Q2

REPORT INFORMATION
  Report Type: Spontaneous
  Country: US (occurrence: US)
  Receive Date: 20130404
  Receipt Date: 20130429
  Transmission Date: 20140414
  Serious: Yes (Other)
  Sender: FDA-Public Use
  Company Number: US-SANOFI-AVENTIS-2013SA034544

PATIENT
  Age: 73 Year
  Sex: Male
  Weight: 122.47 kg

DRUGS (4)
  1. LANTUS SOLOSTAR [Suspect]
     Indication: DIABETES MELLITUS
     Dosage: TAKEN FROM: 3 MONTHS AGO?DOSAGE:10-25 UNITS?DOSAGE:45-56 UNITS DAILY
     Route: 051
  2. SOLOSTAR [Suspect]
     Indication: DIABETES MELLITUS
     Dosage: TAKEN FROM:3 MONTHS AGO
  3. METFORMIN [Concomitant]
  4. ACTOS [Concomitant]

REACTIONS (1)
  - Dialysis [Unknown]
